FAERS Safety Report 22298538 (Version 2)
Quarter: 2023Q2

REPORT INFORMATION
  Report Type: Spontaneous
  Country: AT (occurrence: AT)
  Receive Date: 20230509
  Receipt Date: 20230620
  Transmission Date: 20230722
  Serious: Yes (Other)
  Sender: FDA-Public Use
  Company Number: None

PATIENT
  Age: 78 Year
  Sex: Male

DRUGS (2)
  1. BEVACIZUMAB [Suspect]
     Active Substance: BEVACIZUMAB
     Indication: Prostate cancer
     Dosage: UNK
     Route: 042
     Dates: start: 20230130
  2. ATEZOLIZUMAB [Suspect]
     Active Substance: ATEZOLIZUMAB
     Indication: Prostate cancer
     Dosage: UNK
     Route: 042
     Dates: start: 20230130

REACTIONS (3)
  - Type IV hypersensitivity reaction [Unknown]
  - Drug eruption [Unknown]
  - Off label use [Unknown]

NARRATIVE: CASE EVENT DATE: 20230130
